FAERS Safety Report 8205146-8 (Version None)
Quarter: 2012Q1

REPORT INFORMATION
  Report Type: 
  Country: None (occurrence: None)
  Receive Date: 20120313
  Receipt Date: 20120305
  Transmission Date: 20120608
  Serious: Yes (Hospitalization)
  Sender: FDA-Public Use
  Company Number: JP-VIIV HEALTHCARE LIMITED-B0787008A

PATIENT
  Age: 33 Year
  Sex: Female

DRUGS (5)
  1. EPIVIR [Suspect]
     Indication: HIV INFECTION
     Route: 048
     Dates: start: 20101201
  2. ZERIT [Suspect]
     Indication: HIV INFECTION
     Route: 048
     Dates: start: 20101201
  3. PYRIMETHAMINE TAB [Concomitant]
     Indication: CEREBRAL TOXOPLASMOSIS
  4. ANTI-TUBERCULOSIS MEDICATION [Concomitant]
     Indication: PULMONARY TUBERCULOSIS
     Route: 065
  5. EFAVIRENZ [Suspect]
     Indication: HIV INFECTION
     Route: 048
     Dates: start: 20101201

REACTIONS (5)
  - PAIN [None]
  - PYREXIA [None]
  - IMMUNE RECONSTITUTION SYNDROME [None]
  - GAIT DISTURBANCE [None]
  - LYMPHADENOPATHY [None]
